FAERS Safety Report 5507472-X (Version None)
Quarter: 2007Q4

REPORT INFORMATION
  Report Type: 
  Country: None (occurrence: None)
  Receive Date: 20071106
  Receipt Date: 20071025
  Transmission Date: 20080405
  Serious: Yes (Other)
  Sender: FDA-Public Use
  Company Number: HU-JNJFOC-20071100414

PATIENT
  Age: 55 Year
  Sex: Female

DRUGS (2)
  1. INFLIXIMAB [Suspect]
     Indication: PSORIATIC ARTHROPATHY
     Dosage: 4TH INFUSION
     Route: 042
  2. INFLIXIMAB [Suspect]
     Indication: PSORIASIS
     Dosage: 3 INFUSIONS, DATES UNSPECIFIED
     Route: 042

REACTIONS (5)
  - DERMATITIS EXFOLIATIVE [None]
  - DYSPNOEA [None]
  - ECZEMA [None]
  - INFUSION RELATED REACTION [None]
  - LARYNGOSPASM [None]
